FAERS Safety Report 20976193 (Version 1)
Quarter: 2022Q2

REPORT INFORMATION
  Report Type: Spontaneous
  Country: CA (occurrence: CA)
  Receive Date: 20220617
  Receipt Date: 20220617
  Transmission Date: 20220721
  Serious: Yes (Hospitalization)
  Sender: FDA-Public Use
  Company Number: CA-drreddys-SPO/CAN/22/0151165

PATIENT
  Age: 77 Year
  Sex: Female

DRUGS (1)
  1. AZACITIDINE [Suspect]
     Active Substance: AZACITIDINE
     Indication: Product used for unknown indication
     Route: 058

REACTIONS (6)
  - Delirium febrile [Unknown]
  - Confusional state [Unknown]
  - Nausea [Unknown]
  - Pancytopenia [Unknown]
  - Pyrexia [Unknown]
  - Vomiting [Unknown]
